FAERS Safety Report 8133182-9 (Version None)
Quarter: 2012Q1

REPORT INFORMATION
  Report Type: 
  Country: None (occurrence: None)
  Receive Date: 20120213
  Receipt Date: 20120209
  Transmission Date: 20120608
  Serious: Yes (Death, Hospitalization, Other)
  Sender: FDA-Public Use
  Company Number: BE-AMGEN-BELSP2012003742

PATIENT
  Age: 65 Year
  Sex: Female
  Weight: 75 kg

DRUGS (5)
  1. ADRIAMYCIN PFS [Concomitant]
     Indication: HODGKIN'S DISEASE STAGE IV
     Dosage: 25 MG/M2, Q2WK
     Route: 042
     Dates: start: 20110824, end: 20111226
  2. BLEOMYCIN [Concomitant]
     Indication: HODGKIN'S DISEASE STAGE IV
     Dosage: 10 IU, UNK
     Route: 042
     Dates: start: 20110824, end: 20111226
  3. VINBLASTINE SULFATE [Concomitant]
     Indication: HODGKIN'S DISEASE STAGE IV
     Dosage: 6 MG/M2, UNK
     Route: 042
     Dates: start: 20110824, end: 20111226
  4. NEULASTA [Suspect]
     Indication: CHEMOTHERAPY
     Dosage: UNK UNK, Q2WK
     Route: 058
     Dates: start: 20110905, end: 20111212
  5. DACARBAZINE [Concomitant]
     Indication: HODGKIN'S DISEASE STAGE IV
     Dosage: 375 MG/M2, Q2WK
     Route: 042
     Dates: start: 20110824, end: 20111226

REACTIONS (1)
  - PULMONARY TOXICITY [None]
